FAERS Safety Report 25521536 (Version 1)
Quarter: 2025Q3

REPORT INFORMATION
  Report Type: Spontaneous
  Country: GB (occurrence: GB)
  Receive Date: 20250706
  Receipt Date: 20250706
  Transmission Date: 20251021
  Serious: Yes (Other)
  Sender: SANOFI AVENTIS
  Company Number: None

PATIENT
  Age: 67 Year
  Sex: Female

DRUGS (6)
  1. CLOPIDOGREL BISULFATE [Suspect]
     Active Substance: CLOPIDOGREL BISULFATE
     Dosage: 75 MG, QD (75 MG TABLETS ONE TO BE TAKEN EACH DAY)
  2. LANSOPRAZOLE [Concomitant]
     Active Substance: LANSOPRAZOLE
     Dosage: 15 MG, BID (15 MG GASTRO-RESISTANT CAPSULES ONE TO BE TAKEN TWICE A DAY)
  3. DULOXETINE [Concomitant]
     Active Substance: DULOXETINE
     Dosage: 60 MG, BID (60 MG GASTRO-RESISTANT CAPSULES ONE TO BE TAKEN TWICE DAILY)
  4. SERTRALINE [Concomitant]
     Active Substance: SERTRALINE HYDROCHLORIDE
     Dosage: 50 MG, QD (50 MG TABLETS ONE TO BE TAKEN EACH DAY)
  5. Ranolazine celix [Concomitant]
     Dosage: 375 MG, BID (375 MG MODIFIED-RELEASE TABLETS ONE TO BE TAKEN TWICE A DAY)
  6. SITAGLIPTIN [Concomitant]
     Active Substance: SITAGLIPTIN
     Dosage: 50 MG, QD (SITAGLIPTIN 50 MG TABLETS ONE TO BE TAKEN EACH MORNING)

REACTIONS (5)
  - Cardiac arrest [Unknown]
  - Unresponsive to stimuli [Unknown]
  - Hypoxia [Unknown]
  - Hypovolaemia [Unknown]
  - Melaena [Unknown]
